FAERS Safety Report 15255963 (Version 4)
Quarter: 2018Q4

REPORT INFORMATION
  Report Type: Report from Study
  Country: US (occurrence: US)
  Receive Date: 20180808
  Receipt Date: 20181017
  Transmission Date: 20190204
  Serious: Yes (Other)
  Sender: FDA-Public Use
  Company Number: US-ROCHE-2165951

PATIENT
  Sex: Female

DRUGS (7)
  1. ZOFRAN [Concomitant]
     Active Substance: ONDANSETRON HYDROCHLORIDE
     Indication: NAUSEA
  2. OCREVUS [Suspect]
     Active Substance: OCRELIZUMAB
     Indication: PRIMARY PROGRESSIVE MULTIPLE SCLEROSIS
     Route: 065
     Dates: start: 20170818
  3. OCREVUS [Suspect]
     Active Substance: OCRELIZUMAB
     Dosage: NEXT DOSE ON 22/OCT/2018
     Route: 065
     Dates: start: 20181005
  4. BACLOFEN. [Concomitant]
     Active Substance: BACLOFEN
     Indication: MUSCLE SPASTICITY
  5. OCREVUS [Suspect]
     Active Substance: OCRELIZUMAB
     Indication: PRIMARY PROGRESSIVE MULTIPLE SCLEROSIS
     Route: 065
     Dates: start: 20170901
  6. BETASERON [Concomitant]
     Active Substance: INTERFERON BETA-1B
  7. OXYBUTIN [Concomitant]
     Active Substance: OXYBUTYNIN

REACTIONS (2)
  - Urinary tract infection [Unknown]
  - Infection [Unknown]
